FAERS Safety Report 6980874 (Version 3)
Quarter: 2014Q1

REPORT INFORMATION
  Report Type: Report from Study
  Country: IT (occurrence: IT)
  Receive Date: 20090429
  Receipt Date: 20140319
  Transmission Date: 20141002
  Serious: Yes (Death)
  Sender: FDA-Public Use
  Company Number: PHHO2009IT05427

PATIENT
  Age: 70 Year
  Sex: Male

DRUGS (1)
  1. CGP 57148B [Suspect]
     Indication: CHRONIC MYELOID LEUKAEMIA
     Dosage: 400 MG, QD
     Route: 048
     Dates: start: 20040921

REACTIONS (4)
  - Sudden death [Fatal]
  - Cyanosis [Fatal]
  - Head injury [Fatal]
  - Fall [Fatal]
